FAERS Safety Report 9146100 (Version 3)
Quarter: 2018Q3

REPORT INFORMATION
  Report Type: Report from Study
  Country: AR (occurrence: AR)
  Receive Date: 20130307
  Receipt Date: 20180828
  Transmission Date: 20181010
  Serious: Yes (Hospitalization, Other)
  Sender: FDA-Public Use
  Company Number: PHHY2013AR021335

PATIENT
  Age: 78 Year
  Sex: Female

DRUGS (2)
  1. LUCENTIS [Suspect]
     Active Substance: RANIBIZUMAB
     Indication: MACULOPATHY
     Dosage: 1 DF, QMO
     Route: 031
     Dates: start: 2011
  2. LUCENTIS [Suspect]
     Active Substance: RANIBIZUMAB
     Indication: RETINAL ISCHAEMIA

REACTIONS (4)
  - Gastric disorder [Recovered/Resolved]
  - Facial paralysis [Recovered/Resolved]
  - Visual impairment [Recovering/Resolving]
  - Maculopathy [Recovering/Resolving]

NARRATIVE: CASE EVENT DATE: 201207
